FAERS Safety Report 7444988-3 (Version None)
Quarter: 2011Q2

REPORT INFORMATION
  Report Type: 
  Country: None (occurrence: None)
  Receive Date: 20110429
  Receipt Date: 20110418
  Transmission Date: 20111010
  Serious: Yes (Life-Threatening, Hospitalization)
  Sender: FDA-Public Use
  Company Number: FR-BRISTOL-MYERS SQUIBB COMPANY-15702723

PATIENT
  Age: 62 Year
  Sex: Female

DRUGS (10)
  1. KARDEGIC [Concomitant]
  2. LORMETAZEPAM [Concomitant]
     Dosage: NOCTAMINE
  3. GLUCOPHAGE [Suspect]
     Indication: TYPE 2 DIABETES MELLITUS
     Dosage: 850MG
     Route: 048
  4. DIAMICRON [Concomitant]
  5. SEROPLEX [Concomitant]
  6. TOPALGIC [Concomitant]
  7. EFFEXOR [Concomitant]
  8. PARACETAMOL [Concomitant]
  9. LANTUS [Suspect]
  10. ALPRAZOLAM [Concomitant]

REACTIONS (3)
  - HYPOGLYCAEMIA [None]
  - RENAL FAILURE ACUTE [None]
  - LACTIC ACIDOSIS [None]
